FAERS Safety Report 8169069-5 (Version None)
Quarter: 2012Q1

REPORT INFORMATION
  Report Type: 
  Country: None (occurrence: None)
  Receive Date: 20120227
  Receipt Date: 20120223
  Transmission Date: 20120608
  Serious: Yes (Death, Other)
  Sender: FDA-Public Use
  Company Number: US-GILEAD-2012-0051387

PATIENT
  Age: 76 Year
  Sex: Female

DRUGS (15)
  1. MOMETASONE FUROATE [Concomitant]
  2. ALBUTEROL [Concomitant]
  3. FLUTICASONE PROPIONATE [Concomitant]
  4. HYDROXYCHLOROQUINE SULFATE [Concomitant]
  5. PRAVASTATIN [Concomitant]
  6. AMIODARONE HCL [Concomitant]
  7. DIGOXIN [Concomitant]
  8. FUROSEMIDE [Concomitant]
  9. OMEPRAZOLE [Concomitant]
  10. LETAIRIS [Suspect]
     Indication: PULMONARY HYPERTENSION
     Dosage: 10 MG, QD
     Route: 048
     Dates: start: 20091201, end: 20120101
  11. LETAIRIS [Suspect]
     Indication: CREST SYNDROME
  12. FERROUS SULFATE TAB [Concomitant]
  13. CHOLECALCIFEROL [Concomitant]
  14. IPRATROPIUM BROMIDE [Concomitant]
  15. POTASSIUM CHLORIDE [Concomitant]

REACTIONS (2)
  - COLON CANCER [None]
  - DEATH [None]
